FAERS Safety Report 5875920-1 (Version None)
Quarter: 2008Q3

REPORT INFORMATION
  Report Type: 
  Country: None (occurrence: None)
  Receive Date: 20080910
  Receipt Date: 20080829
  Transmission Date: 20090109
  Serious: Yes (Other)
  Sender: FDA-Public Use
  Company Number: DE-RANBAXY-2008RR-17711

PATIENT

DRUGS (1)
  1. CLINDAMYCINE RANBAXY 300 MG CAPSULES [Suspect]
     Indication: OSTEITIS
     Dosage: 600 MG, BID
     Route: 048
     Dates: start: 20080101

REACTIONS (1)
  - PALPITATIONS [None]
